FAERS Safety Report 4280394-0 (Version None)
Quarter: 2004Q1

REPORT INFORMATION
  Report Type: 
  Country: None (occurrence: None)
  Receive Date: 20040126
  Receipt Date: 20040109
  Transmission Date: 20041129
  Serious: Yes (Hospitalization, Other)
  Sender: FDA-Public Use
  Company Number: 173163

PATIENT
  Age: 38 Year
  Sex: Female
  Weight: 85 kg

DRUGS (7)
  1. AVONEX [Suspect]
     Indication: MULTIPLE SCLEROSIS
     Dosage: 30 MCG QW IM
     Route: 030
     Dates: start: 20010101
  2. OXYBUTININ [Concomitant]
  3. LEVOMEPROMAZIN [Concomitant]
  4. IDEOS [Concomitant]
  5. BACLOFEN [Concomitant]
  6. BRONCHORETARD [Concomitant]
  7. ACEMETHACIN [Concomitant]

REACTIONS (4)
  - CONDITION AGGRAVATED [None]
  - GROIN ABSCESS [None]
  - SQUAMOUS CELL CARCINOMA [None]
  - THYROID NEOPLASM [None]
